FAERS Safety Report 5085429-3 (Version None)
Quarter: 2006Q3

REPORT INFORMATION
  Report Type: 
  Country: None (occurrence: None)
  Receive Date: 20060815
  Receipt Date: 20060803
  Transmission Date: 20061208
  Serious: Yes (Other)
  Sender: FDA-Public Use
  Company Number: THYM-11012

PATIENT
  Age: 26 Year
  Sex: Female
  Weight: 68.4024 kg

DRUGS (14)
  1. THYMOGLOBULIN [Suspect]
     Indication: RENAL TRANSPLANT
     Dosage: 100 MG ONCE IV
     Route: 042
     Dates: start: 20060630, end: 20060630
  2. TACROLIMUS [Suspect]
     Indication: RENAL TRANSPLANT
  3. CELLCEPT [Concomitant]
  4. TACROLIMUS [Concomitant]
  5. PREDNISONE TAB [Concomitant]
  6. BACTRIM [Concomitant]
  7. FLUCONAZOLE [Concomitant]
  8. LORAZEPAM [Concomitant]
  9. DILAUDID [Concomitant]
  10. NORVASC [Concomitant]
  11. FLAGYL I.V. [Concomitant]
  12. PREVACID [Concomitant]
  13. ZOFRAN [Concomitant]
  14. LEXAPRO [Concomitant]

REACTIONS (4)
  - DRUG TOXICITY [None]
  - KIDNEY TRANSPLANT REJECTION [None]
  - RENAL TUBULAR DISORDER [None]
  - THROMBOTIC MICROANGIOPATHY [None]
